FAERS Safety Report 5234693-6 (Version None)
Quarter: 2007Q1

REPORT INFORMATION
  Report Type: 
  Country: None (occurrence: None)
  Receive Date: 20070209
  Receipt Date: 20070202
  Transmission Date: 20070707
  Serious: Yes (Hospitalization)
  Sender: FDA-Public Use
  Company Number: JP-ABBOTT-07P-087-0358234-00

PATIENT
  Sex: Male

DRUGS (18)
  1. SEVOFLURANE [Suspect]
     Indication: MAINTENANCE OF ANAESTHESIA
     Route: 055
     Dates: start: 20060525, end: 20060525
  2. SEVOFLURANE [Suspect]
     Dates: start: 20060525, end: 20060525
  3. PROPOFOL [Suspect]
     Indication: INDUCTION OF ANAESTHESIA
     Route: 042
     Dates: start: 20060525, end: 20060525
  4. NITROUS OXIDE W/ OXYGEN [Concomitant]
     Indication: INDUCTION OF ANAESTHESIA
     Dosage: 50%
     Route: 055
     Dates: start: 20060525, end: 20060525
  5. NITROUS OXIDE W/ OXYGEN [Concomitant]
     Indication: MAINTENANCE OF ANAESTHESIA
  6. ATROPINE SULFATE [Concomitant]
     Indication: BRADYCARDIA
     Route: 042
     Dates: start: 20060525, end: 20060525
  7. EPHEDRINE HYDROCHLORIDE [Concomitant]
     Indication: HYPOTENSION
     Route: 042
     Dates: start: 20060525, end: 20060525
  8. FENTANYL CITRATE [Concomitant]
     Indication: ANALGESIC EFFECT
     Route: 042
     Dates: start: 20060525, end: 20060525
  9. UNACID [Concomitant]
     Indication: INFECTION PROPHYLAXIS
     Dates: start: 20060525, end: 20060525
  10. ACETATED RINGER'S SOLUTION [Concomitant]
     Indication: FLUID REPLACEMENT
     Dates: start: 20060525, end: 20060525
  11. FUROSEMIDE [Concomitant]
     Indication: HYPERTENSION
     Route: 065
  12. SPIRONOLACTONE [Concomitant]
     Indication: HYPERTENSION
     Route: 065
  13. INSULIN [Concomitant]
     Indication: DIABETES MELLITUS
     Route: 065
  14. ADENOSINE 5-TRIPHOSPHATE [Concomitant]
     Indication: ATRIAL TACHYCARDIA
     Route: 065
  15. HEPARIN [Concomitant]
     Indication: CEREBRAL INFARCTION
     Dates: end: 20060525
  16. HEPARIN [Concomitant]
     Indication: THROMBOSIS PROPHYLAXIS
  17. XYLOCAINE W/ EPINEPHRINE [Concomitant]
     Indication: LOCAL ANAESTHESIA
     Route: 050
     Dates: start: 20060525, end: 20060525
  18. OXYGEN [Concomitant]
     Indication: MAINTENANCE OF ANAESTHESIA
     Dates: start: 20060525, end: 20060525

REACTIONS (1)
  - SINUS ARREST [None]
